FAERS Safety Report 7887586-X (Version None)
Quarter: 2011Q4

REPORT INFORMATION
  Report Type: 
  Country: None (occurrence: None)
  Receive Date: 20111103
  Receipt Date: 20111024
  Transmission Date: 20120403
  Serious: No
  Sender: FDA-Public Use
  Company Number: US-BIOGENIDEC-2011BI040627

PATIENT
  Age: 58 Year
  Sex: Female

DRUGS (4)
  1. AVONEX [Concomitant]
     Indication: MULTIPLE SCLEROSIS
     Route: 030
     Dates: start: 19990301
  2. TYSABRI [Suspect]
     Indication: MULTIPLE SCLEROSIS
     Route: 042
     Dates: start: 20070308, end: 20080428
  3. AVONEX [Concomitant]
     Route: 030
     Dates: start: 20080626
  4. TYSABRI [Suspect]
     Route: 042
     Dates: start: 20111016

REACTIONS (7)
  - JOINT SWELLING [None]
  - LACERATION [None]
  - FALL [None]
  - MEMORY IMPAIRMENT [None]
  - JOINT EFFUSION [None]
  - UPPER LIMB FRACTURE [None]
  - ROAD TRAFFIC ACCIDENT [None]
